FAERS Safety Report 9496121 (Version 2)
Quarter: 2013Q3

REPORT INFORMATION
  Report Type: Spontaneous
  Country: BE (occurrence: BE)
  Receive Date: 20130904
  Receipt Date: 20130906
  Transmission Date: 20140515
  Serious: Yes (Hospitalization, Other)
  Sender: FDA-Public Use
  Company Number: BE-ROCHE-1269532

PATIENT
  Age: 66 Year
  Sex: Female
  Weight: 53 kg

DRUGS (22)
  1. XELODA [Suspect]
     Indication: BREAST CANCER METASTATIC
     Route: 065
     Dates: start: 20110822, end: 20120315
  2. XELODA [Suspect]
     Route: 065
     Dates: start: 20120405, end: 20120528
  3. XELODA [Suspect]
     Route: 065
     Dates: start: 20120709
  4. XELODA [Suspect]
     Route: 065
     Dates: start: 20120804
  5. HERCEPTIN [Suspect]
     Indication: BREAST CANCER METASTATIC
     Route: 065
     Dates: start: 20100611
  6. HERCEPTIN [Suspect]
     Route: 065
     Dates: start: 20120405
  7. HERCEPTIN [Suspect]
     Route: 065
     Dates: start: 20130527
  8. EPIRUBICIN [Suspect]
     Indication: BREAST CANCER METASTATIC
     Route: 065
     Dates: start: 20100611, end: 20100723
  9. CYCLOPHOSPHAMIDE [Suspect]
     Indication: BREAST CANCER METASTATIC
     Route: 065
     Dates: start: 20100611, end: 20100723
  10. FLUOROURACIL [Suspect]
     Indication: BREAST CANCER METASTATIC
     Route: 065
     Dates: start: 20100611, end: 20100723
  11. NOLVADEX [Suspect]
     Indication: BREAST CANCER METASTATIC
     Route: 065
     Dates: start: 20091204
  12. TAXOTERE [Suspect]
     Indication: BREAST CANCER METASTATIC
     Route: 065
     Dates: start: 20100813
  13. TYVERB [Suspect]
     Indication: BREAST CANCER METASTATIC
     Route: 065
     Dates: start: 20110822, end: 20120315
  14. TYVERB [Suspect]
     Route: 065
     Dates: start: 20120723
  15. NAVELBINE [Suspect]
     Indication: BREAST CANCER METASTATIC
     Route: 065
     Dates: start: 20130627
  16. TROPISETRON [Concomitant]
     Indication: NAUSEA
     Route: 065
     Dates: start: 20100611
  17. APREPITANT [Concomitant]
     Indication: NAUSEA
     Route: 065
     Dates: start: 20100611
  18. ALIZAPRIDE [Concomitant]
     Indication: NAUSEA
     Route: 065
     Dates: start: 20100611
  19. METHYLPREDNISOLONE [Concomitant]
     Indication: NAUSEA
     Route: 065
     Dates: start: 20100611, end: 20100727
  20. METHYLPREDNISOLONE [Concomitant]
     Route: 065
     Dates: start: 20100611, end: 20100727
  21. METHYLPREDNISOLONE [Concomitant]
     Route: 065
     Dates: start: 20100813, end: 20100924
  22. METHYLPREDNISOLONE [Concomitant]
     Route: 065
     Dates: start: 20100813, end: 20100924

REACTIONS (4)
  - Pancytopenia [Unknown]
  - Deep vein thrombosis [Unknown]
  - Pulmonary embolism [Unknown]
  - Disease progression [Not Recovered/Not Resolved]
